FAERS Safety Report 5507366-X (Version None)
Quarter: 2007Q4

REPORT INFORMATION
  Report Type: 
  Country: None (occurrence: None)
  Receive Date: 20071102
  Receipt Date: 20071026
  Transmission Date: 20080405
  Serious: Yes (Other)
  Sender: FDA-Public Use
  Company Number: 2007SP021395

PATIENT
  Age: 71 Year
  Sex: Male

DRUGS (1)
  1. CLARITIN [Suspect]
     Indication: ECZEMA
     Dosage: 10 MG;PO
     Route: 048
     Dates: start: 20071012, end: 20071015

REACTIONS (1)
  - ERYTHEMA [None]
